FAERS Safety Report 9772141 (Version 1)
Quarter: 2013Q4

REPORT INFORMATION
  Report Type: Spontaneous
  Country: US (occurrence: None)
  Receive Date: 20131218
  Receipt Date: 20131218
  Transmission Date: 20140711
  Serious: Yes (Disabling)
  Sender: FDA-Public Use
  Company Number: None

PATIENT
  Age: 46 Year
  Sex: Female
  Weight: 61.24 kg

DRUGS (1)
  1. DEPAKOTE [Suspect]
     Indication: BIPOLAR DISORDER
     Dosage: TAKEN BY MOUTH
     Dates: start: 20101221

REACTIONS (6)
  - Weight increased [None]
  - Metabolic disorder [None]
  - Trichorrhexis [None]
  - Alopecia [None]
  - Hair colour changes [None]
  - Hair texture abnormal [None]
